FAERS Safety Report 5302791-4 (Version None)
Quarter: 2007Q2

REPORT INFORMATION
  Report Type: 
  Country: None (occurrence: None)
  Receive Date: 20070419
  Receipt Date: 20070411
  Transmission Date: 20071010
  Serious: Yes (Hospitalization)
  Sender: FDA-Public Use
  Company Number: JP-MERCK-0704USA02544

PATIENT
  Age: 76 Year
  Sex: Male

DRUGS (5)
  1. FOSAMAX [Suspect]
     Indication: OSTEOPOROSIS
     Route: 048
     Dates: start: 20070309, end: 20070309
  2. ALFACALCIDOL [Concomitant]
     Route: 048
     Dates: start: 20070307
  3. RINGEREAZE [Concomitant]
     Route: 048
     Dates: start: 20070307
  4. EPERISONE HYDROCHLORIDE [Concomitant]
     Route: 048
     Dates: start: 20070307
  5. SOFALCONE [Concomitant]
     Route: 048
     Dates: start: 20070307

REACTIONS (2)
  - GASTROENTERITIS [None]
  - ULCER [None]
